FAERS Safety Report 8827502 (Version 1)
Quarter: 2012Q4

REPORT INFORMATION
  Report Type: 
  Country: CA (occurrence: CA)
  Receive Date: 20121005
  Receipt Date: 20121005
  Transmission Date: 20130627
  Serious: Yes (Hospitalization, Other)
  Sender: FDA-Public Use
  Company Number: CA-ASTRAZENECA-2012SE74975

PATIENT
  Age: 66 Year
  Sex: Female

DRUGS (2)
  1. NEXIUM [Suspect]
     Route: 048
     Dates: start: 1999
  2. PRILOSEC OTC [Concomitant]
     Dosage: OCCASSIONAL
     Route: 048

REACTIONS (1)
  - Gastric polyps [Unknown]
